FAERS Safety Report 21561313 (Version 1)
Quarter: 2022Q4

REPORT INFORMATION
  Report Type: Spontaneous
  Country: IE (occurrence: IE)
  Receive Date: 20221107
  Receipt Date: 20221107
  Transmission Date: 20230113
  Serious: Yes (Other)
  Sender: FDA-Public Use
  Company Number: IE-MYLANLABS-2022M1122295

PATIENT
  Age: 34 Year
  Sex: Female

DRUGS (1)
  1. ADALIMUMAB [Suspect]
     Active Substance: ADALIMUMAB
     Indication: Hidradenitis
     Dosage: 40 MILLIGRAM, 40MG WEEKLY TIMES 6/12 [SIC]
     Route: 065

REACTIONS (3)
  - Paradoxical drug reaction [Recovered/Resolved]
  - Pustular psoriasis [Recovered/Resolved]
  - Palmoplantar pustulosis [Recovered/Resolved]
